FAERS Safety Report 6818479-4 (Version None)
Quarter: 2010Q3

REPORT INFORMATION
  Report Type: 
  Country: None (occurrence: None)
  Receive Date: 20100706
  Receipt Date: 20080828
  Transmission Date: 20110219
  Serious: No
  Sender: FDA-Public Use
  Company Number: US-PFIZER INC-2008073372

PATIENT
  Age: 11 Year
  Sex: Female
  Weight: 34.02 kg

DRUGS (1)
  1. AZITHROMYCIN [Suspect]
     Indication: PNEUMONIA
     Dates: start: 20080828

REACTIONS (1)
  - ABDOMINAL PAIN UPPER [None]
